FAERS Safety Report 18646101 (Version 1)
Quarter: 2020Q4

REPORT INFORMATION
  Report Type: Spontaneous
  Country: QA (occurrence: QA)
  Receive Date: 20201221
  Receipt Date: 20201221
  Transmission Date: 20210114
  Serious: Yes (Hospitalization, Other)
  Sender: FDA-Public Use
  Company Number: QA-ALVOGEN-2020-ALVOGEN-115528

PATIENT
  Age: 29 Year
  Sex: Male

DRUGS (4)
  1. DALTEPARIN SODIUM [Suspect]
     Active Substance: DALTEPARIN SODIUM
     Indication: NEURALGIA
  2. SENNA [Suspect]
     Active Substance: SENNA LEAF\SENNOSIDES\SENNOSIDES A AND B
     Indication: NEURALGIA
  3. MULTIVITAMIN [Suspect]
     Active Substance: VITAMINS
     Indication: NEURALGIA
  4. GABAPENTIN. [Suspect]
     Active Substance: GABAPENTIN
     Indication: NEURALGIA
     Dosage: 300 MG, THREE TIMES A DAY

REACTIONS (1)
  - Myositis [Recovering/Resolving]
